FAERS Safety Report 9236480 (Version 1)
Quarter: 2013Q1

REPORT INFORMATION
  Report Type: Spontaneous
  Country: US (occurrence: None)
  Receive Date: 20121031
  Receipt Date: 20121031
  Transmission Date: 20140127
  Serious: Yes (Hospitalization)
  Sender: FDA-Public Use
  Company Number: PHEH2012US014734

PATIENT
  Age: 46 Year
  Sex: Male
  Weight: 102 kg

DRUGS (9)
  1. GILENYA [Suspect]
     Indication: MULTIPLE SCLEROSIS
     Route: 048
     Dates: start: 20110618
  2. MODAFINIL (MODAFINIL), 100MG [Concomitant]
  3. GABAPENTIN (GABAPENTIN), 300MG [Concomitant]
  4. MULTIVITAMIN (LAPPE) (VITAMINS NOS) [Concomitant]
  5. GLUCOSAMINE W/CHONDROITIN (CHONDROITIN SULFATE, GLUCOSAMINE) [Concomitant]
  6. IBUPROFEN (IBUPROFEN) [Concomitant]
  7. BACLOFEN (BACLOFEN), 20MG [Concomitant]
  8. BENAZEPRIL HYDROCHLORIDE (BENAZEPRIL HYDROCHLORIDE) [Concomitant]
  9. SIMVASTATIN (SIMVASTATIN), 10MG [Concomitant]

REACTIONS (12)
  - Multiple sclerosis relapse [None]
  - Lymphocyte count decreased [None]
  - Rebound effect [None]
  - Nuclear magnetic resonance imaging abnormal [None]
  - Electroencephalogram abnormal [None]
  - Central nervous system lesion [None]
  - Gait disturbance [None]
  - Hypoaesthesia [None]
  - Dysarthria [None]
  - Confusional state [None]
  - Abnormal behaviour [None]
  - Disorientation [None]
